FAERS Safety Report 6121897-3 (Version None)
Quarter: 2009Q1

REPORT INFORMATION
  Report Type: 
  Country: None (occurrence: None)
  Receive Date: 20090317
  Receipt Date: 20090317
  Transmission Date: 20090719
  Serious: Yes (Other)
  Sender: FDA-Public Use
  Company Number: US-PFIZER INC-2009161606

PATIENT
  Sex: Female

DRUGS (1)
  1. SOLU-MEDROL [Suspect]
     Indication: PRURITUS GENERALISED
     Dosage: FREQUENCY: ONCE,
     Route: 030
     Dates: start: 20090122

REACTIONS (1)
  - INJECTION SITE MOVEMENT IMPAIRMENT [None]
